FAERS Safety Report 18400473 (Version 2)
Quarter: 2020Q4

REPORT INFORMATION
  Report Type: Spontaneous
  Country: US (occurrence: US)
  Receive Date: 20201019
  Receipt Date: 20201027
  Transmission Date: 20210114
  Serious: Yes (Other)
  Sender: FDA-Public Use
  Company Number: US-PFIZER INC-2020399738

PATIENT
  Age: 70 Year
  Sex: Female
  Weight: 79.38 kg

DRUGS (2)
  1. IBRANCE [Suspect]
     Active Substance: PALBOCICLIB
     Dosage: 75 MG, CYCLIC (75MG TABLET BY MOUTH ONCE A DAY FOR 21 DAYS AND OFF FOR 10 DAYS)
     Route: 048
     Dates: start: 202009, end: 202009
  2. IBRANCE [Suspect]
     Active Substance: PALBOCICLIB
     Indication: NEOPLASM MALIGNANT
     Dosage: UNK
     Dates: start: 2016

REACTIONS (6)
  - Gingival disorder [Not Recovered/Not Resolved]
  - Impaired healing [Not Recovered/Not Resolved]
  - Swelling face [Unknown]
  - Blood count abnormal [Recovering/Resolving]
  - Eating disorder [Unknown]
  - Trismus [Unknown]
